FAERS Safety Report 4554777-5 (Version None)
Quarter: 2005Q1

REPORT INFORMATION
  Report Type: 
  Country: None (occurrence: None)
  Receive Date: 20050118
  Receipt Date: 20050113
  Transmission Date: 20050727
  Serious: Yes (Life-Threatening, Disabling)
  Sender: FDA-Public Use
  Company Number: GB-GLAXOSMITHKLINE-B0364451A

PATIENT
  Age: 57 Year
  Sex: Female

DRUGS (14)
  1. AVANDIA [Suspect]
     Indication: DIABETES MELLITUS
     Route: 048
     Dates: start: 20030616, end: 20040903
  2. AMLODIPINE [Concomitant]
     Dosage: 10MG PER DAY
     Route: 065
  3. ATORVASTATIN [Concomitant]
     Dosage: 10MG PER DAY
     Route: 065
  4. BENDROFLUAZIDE [Concomitant]
     Dosage: 2.5MG PER DAY
     Route: 065
  5. DOXAZOSIN [Concomitant]
     Dosage: 8MG PER DAY
     Route: 065
  6. FERROUS SULFATE TAB [Concomitant]
     Dosage: 200MG THREE TIMES PER DAY
     Route: 065
  7. FRUSEMIDE [Concomitant]
     Dosage: 80MG PER DAY
     Route: 065
  8. GABAPENTIN [Concomitant]
     Dosage: 300MG THREE TIMES PER DAY
     Route: 065
  9. RAMIPRIL [Concomitant]
     Dosage: 10MG PER DAY
     Route: 065
  10. VITAMIN B COMPLEX CAP [Concomitant]
     Route: 065
  11. SYMBICORT [Concomitant]
     Dosage: 1PUFF TWICE PER DAY
  12. TERBUTALINE SULFATE [Concomitant]
  13. LANTUS [Concomitant]
     Route: 065
  14. NOVORAPID [Concomitant]
     Dosage: 18ML THREE TIMES PER DAY
     Route: 065

REACTIONS (7)
  - ALOPECIA [None]
  - ASTHENIA [None]
  - CARDIAC FAILURE [None]
  - DYSPNOEA [None]
  - FATIGUE [None]
  - PULMONARY OEDEMA [None]
  - RASH [None]
